FAERS Safety Report 19798418 (Version 4)
Quarter: 2021Q4

REPORT INFORMATION
  Report Type: Spontaneous
  Country: JP (occurrence: JP)
  Receive Date: 20210906
  Receipt Date: 20211221
  Transmission Date: 20220304
  Serious: Yes (Death, Hospitalization, Other)
  Sender: FDA-Public Use
  Company Number: JP-ELI_LILLY_AND_COMPANY-JP202108011688

PATIENT
  Age: 68 Year
  Sex: Male
  Weight: 51 kg

DRUGS (15)
  1. OLUMIANT [Suspect]
     Active Substance: BARICITINIB
     Indication: Rheumatoid vasculitis
     Dosage: 2 MG, DAILY
     Route: 048
     Dates: start: 20201125, end: 202109
  2. LYUMJEV [Concomitant]
     Active Substance: INSULIN LISPRO-AABC
     Dosage: 7 IU IN THE MORNING, 8 IU IN THE AFTERNOON, 4 IU IN THE EVENING
     Route: 058
  3. DENOSUMAB [Concomitant]
     Active Substance: DENOSUMAB
     Indication: Osteoporosis
  4. LOXOPROFEN SODIUM [Concomitant]
     Active Substance: LOXOPROFEN SODIUM
     Route: 048
  5. GASTER [Concomitant]
     Active Substance: FAMOTIDINE
  6. CANAGLIFLOZIN\TENELIGLIPTIN [Concomitant]
     Active Substance: CANAGLIFLOZIN\TENELIGLIPTIN
     Dosage: 1 DOSAGE FORM, DAILY
     Route: 048
  7. AZILSARTAN KAMEDOXOMIL [Concomitant]
     Active Substance: AZILSARTAN KAMEDOXOMIL
     Dosage: 20 MG, DAILY
     Route: 048
  8. AMLODIPINE BESYLATE [Concomitant]
     Active Substance: AMLODIPINE BESYLATE
     Dosage: 5 MG, DAILY
     Route: 048
  9. METGLUCO [Concomitant]
     Active Substance: METFORMIN HYDROCHLORIDE
     Dosage: 500 MG, DAILY
     Route: 048
  10. REPAGLINIDE [Concomitant]
     Active Substance: REPAGLINIDE
     Dosage: 0.5 MG, DAILY
     Route: 048
  11. VONOPRAZAN FUMARATE [Concomitant]
     Active Substance: VONOPRAZAN FUMARATE
     Dosage: 20 MG, DAILY
     Route: 048
  12. PREDONINE [Concomitant]
     Active Substance: PREDNISOLONE
     Indication: Rheumatoid arthritis
  13. AZULFIDINE EN-TABS [Concomitant]
     Active Substance: SULFASALAZINE
  14. CALCIUM CARBONATE\CHOLECALCIFEROL\MAGNESIUM CARBONATE [Concomitant]
     Active Substance: CALCIUM CARBONATE\CHOLECALCIFEROL\MAGNESIUM CARBONATE
  15. FUNGIZONE [Concomitant]
     Active Substance: AMPHOTERICIN B

REACTIONS (6)
  - Acute respiratory distress syndrome [Fatal]
  - Pancreatic carcinoma stage IV [Not Recovered/Not Resolved]
  - Jaundice cholestatic [Recovering/Resolving]
  - Metastases to peritoneum [Unknown]
  - Abdominal abscess [Unknown]
  - Off label use [Unknown]

NARRATIVE: CASE EVENT DATE: 20210725
